FAERS Safety Report 17801478 (Version 9)
Quarter: 2023Q4

REPORT INFORMATION
  Report Type: Spontaneous
  Country: NL (occurrence: NL)
  Receive Date: 20200519
  Receipt Date: 20231219
  Transmission Date: 20240110
  Serious: Yes (Life-Threatening, Hospitalization, Other)
  Sender: FDA-Public Use
  Company Number: None

PATIENT
  Age: 35 Year
  Sex: Male
  Weight: 89 kg

DRUGS (11)
  1. EVEROLIMUS [Interacting]
     Active Substance: EVEROLIMUS
     Indication: Immunosuppressant drug therapy
     Dosage: 3,MG.BID
     Route: 065
     Dates: start: 2016, end: 202003
  2. EVEROLIMUS [Interacting]
     Active Substance: EVEROLIMUS
     Indication: Renal transplant
     Dosage: 2,MG,BID
     Route: 065
     Dates: start: 202003, end: 202003
  3. PREDNISOLONE [Suspect]
     Active Substance: PREDNISOLONE
     Indication: Renal transplant
     Dosage: 7.5 MG, QD
     Route: 065
     Dates: start: 2016
  4. PREDNISOLONE [Suspect]
     Active Substance: PREDNISOLONE
     Indication: Immunosuppressant drug therapy
     Dosage: 7.5 MG, QD
     Route: 065
  5. LOPINAVIR [Suspect]
     Active Substance: LOPINAVIR
     Indication: COVID-19 pneumonia
     Dosage: 2 DOSAGE FORM, QD (UNIT DOSE: 400/100 MG)
     Route: 048
     Dates: start: 202003, end: 202003
  6. LOPINAVIR [Suspect]
     Active Substance: LOPINAVIR
     Indication: COVID-19
  7. LOPINAVIR [Suspect]
     Active Substance: LOPINAVIR
     Indication: Antiviral treatment
  8. ACETAMINOPHEN [Suspect]
     Active Substance: ACETAMINOPHEN
     Indication: Cough
     Dosage: UNK
     Route: 065
     Dates: start: 202002
  9. ACETAMINOPHEN [Suspect]
     Active Substance: ACETAMINOPHEN
     Indication: Pyrexia
  10. ACETAMINOPHEN [Suspect]
     Active Substance: ACETAMINOPHEN
     Indication: Myalgia
  11. ACETAMINOPHEN [Suspect]
     Active Substance: ACETAMINOPHEN
     Indication: Malaise

REACTIONS (40)
  - Renal impairment [Recovering/Resolving]
  - Interstitial lung disease [Recovered/Resolved]
  - Drug interaction [Recovered/Resolved]
  - Off label use [Unknown]
  - Respiratory failure [Recovered/Resolved]
  - Acute pulmonary oedema [Recovered/Resolved]
  - Rhabdomyolysis [Recovered/Resolved]
  - Acute kidney injury [Recovering/Resolving]
  - Respiratory alkalosis [Recovered/Resolved]
  - Hypoxia [Recovered/Resolved]
  - Metabolic acidosis [Recovering/Resolving]
  - Condition aggravated [Unknown]
  - COVID-19 [Recovered/Resolved]
  - Lung consolidation [Recovering/Resolving]
  - Transaminases increased [Recovered/Resolved]
  - Toxicity to various agents [Recovered/Resolved]
  - Diarrhoea [Recovering/Resolving]
  - Vomiting [Recovering/Resolving]
  - Tubulointerstitial nephritis [Not Recovered/Not Resolved]
  - Tachypnoea [Recovering/Resolving]
  - Nausea [Recovering/Resolving]
  - Dyspnoea [Recovering/Resolving]
  - Rhinorrhoea [Recovering/Resolving]
  - COVID-19 pneumonia [Recovering/Resolving]
  - Pneumonitis [Unknown]
  - Bacterial infection [Unknown]
  - Headache [Recovering/Resolving]
  - Lymphopenia [Recovering/Resolving]
  - Malaise [Recovering/Resolving]
  - Pyrexia [Recovering/Resolving]
  - Rales [Recovering/Resolving]
  - Nasal congestion [Recovering/Resolving]
  - Productive cough [Recovering/Resolving]
  - Pneumococcal infection [Unknown]
  - Myalgia [Recovering/Resolving]
  - Cough [Recovering/Resolving]
  - Acute respiratory distress syndrome [Recovering/Resolving]
  - Renal injury [Unknown]
  - Product use in unapproved indication [Unknown]
  - Drug level increased [Unknown]

NARRATIVE: CASE EVENT DATE: 20200214
